FAERS Safety Report 7145409-0 (Version None)
Quarter: 2010Q4

REPORT INFORMATION
  Report Type: 
  Country: None (occurrence: None)
  Receive Date: 20101208
  Receipt Date: 20101202
  Transmission Date: 20110411
  Serious: No
  Sender: FDA-Public Use
  Company Number: US-PFIZER INC-2010163175

PATIENT
  Sex: Male
  Weight: 77.098 kg

DRUGS (3)
  1. VIAGRA [Suspect]
     Indication: ERECTILE DYSFUNCTION
     Dosage: 50 MG, UNK
     Route: 048
     Dates: start: 20050101
  2. LISINOPRIL [Concomitant]
     Indication: HYPERTENSION
     Dosage: 10 MG, UNK
  3. NIASPAN [Concomitant]
     Indication: BLOOD CHOLESTEROL ABNORMAL
     Dosage: 600 MG, UNK

REACTIONS (1)
  - BLOOD TRIGLYCERIDES INCREASED [None]
